FAERS Safety Report 16665789 (Version 1)
Quarter: 2019Q3

REPORT INFORMATION
  Report Type: Spontaneous
  Country: JP (occurrence: JP)
  Receive Date: 20190804
  Receipt Date: 20190804
  Transmission Date: 20191004
  Serious: Yes (Hospitalization, Other)
  Sender: FDA-Public Use
  Company Number: JP-BAYER-2019-138471

PATIENT
  Age: 67 Year
  Sex: Male
  Weight: 59.9 kg

DRUGS (5)
  1. STIVARGA [Suspect]
     Active Substance: REGORAFENIB
     Indication: METASTASES TO LIVER
  2. ESOMEPRAZOLE. [Concomitant]
     Active Substance: ESOMEPRAZOLE MAGNESIUM
     Dosage: 20 MG, QD
     Dates: start: 20181124
  3. ANTEBATE [Concomitant]
     Active Substance: BETAMETHASONE DIPROPIONATE
     Dosage: 50G ONCE, SEVERAL TIMES
     Route: 061
  4. AMLODIPINE OD TYK [Concomitant]
     Dosage: 5 MG, QD
     Dates: start: 20180929
  5. STIVARGA [Suspect]
     Active Substance: REGORAFENIB
     Indication: COLON CANCER METASTATIC
     Dosage: 160 MG, QD
     Route: 048
     Dates: start: 20190624, end: 20190703

REACTIONS (20)
  - Stomatitis [Recovering/Resolving]
  - Pyrexia [Recovering/Resolving]
  - Blood creatine phosphokinase increased [None]
  - Oropharyngeal pain [Recovering/Resolving]
  - Fibrin degradation products increased [None]
  - Vomiting [Recovering/Resolving]
  - Drug eruption [Recovering/Resolving]
  - Prothrombin time ratio increased [None]
  - Rhabdomyolysis [None]
  - Platelet count decreased [Recovering/Resolving]
  - Disseminated intravascular coagulation [None]
  - Hepatic enzyme increased [Recovering/Resolving]
  - Blood fibrinogen decreased [None]
  - Decreased appetite [Recovering/Resolving]
  - Hyponatraemia [Recovering/Resolving]
  - Hypophosphataemia [Recovering/Resolving]
  - Hyperfibrinolysis [None]
  - Renal impairment [Recovering/Resolving]
  - Diarrhoea [None]
  - Rash generalised [Recovering/Resolving]

NARRATIVE: CASE EVENT DATE: 20190703
